FAERS Safety Report 5313851-6 (Version None)
Quarter: 2007Q2

REPORT INFORMATION
  Report Type: 
  Country: None (occurrence: None)
  Receive Date: 20070501
  Receipt Date: 20070427
  Transmission Date: 20071010
  Serious: Yes (Hospitalization)
  Sender: FDA-Public Use
  Company Number: FR-GLAXOSMITHKLINE-B0466717A

PATIENT
  Age: 82 Year
  Sex: Female

DRUGS (11)
  1. AZATHIOPRINE SODIUM [Suspect]
     Dosage: 2.5TAB PER DAY
     Route: 048
     Dates: end: 20070225
  2. AUGMENTIN '125' [Suspect]
     Dosage: 1G TWICE PER DAY
     Route: 048
     Dates: start: 20070213, end: 20070413
  3. NEXIUM [Suspect]
     Route: 048
     Dates: start: 20070225, end: 20070310
  4. TRIFLUCAN [Suspect]
     Dosage: 50MG PER DAY
     Route: 048
     Dates: start: 20070219, end: 20070303
  5. CORTANCYL [Suspect]
     Dosage: 5MG PER DAY
     Route: 048
  6. CHRONADALATE LP [Suspect]
     Dosage: 30MG PER DAY
     Route: 048
  7. LOVENOX [Concomitant]
     Dosage: 1UNIT PER DAY
     Route: 058
  8. ACTISKENAN [Concomitant]
     Dosage: 10MG PER DAY
     Route: 048
  9. GELOX [Concomitant]
     Dosage: 3UNIT PER DAY
  10. NOVONORM [Concomitant]
     Dosage: 1TAB THREE TIMES PER DAY
     Route: 048
  11. COZAAR [Concomitant]
     Dosage: 1TAB PER DAY
     Route: 048

REACTIONS (4)
  - ANAEMIA [None]
  - LYMPHOPENIA [None]
  - NEUTROPENIA [None]
  - PANCREATITIS [None]
